FAERS Safety Report 4649952-5 (Version None)
Quarter: 2005Q2

REPORT INFORMATION
  Report Type: 
  Country: None (occurrence: None)
  Receive Date: 20050502
  Receipt Date: 20050413
  Transmission Date: 20051028
  Serious: Yes (Death, Hospitalization)
  Sender: FDA-Public Use
  Company Number: PHHO2005AR06004

PATIENT
  Age: 51 Year
  Sex: Male
  Weight: 55 kg

DRUGS (4)
  1. ERL080A [Suspect]
     Indication: RENAL TRANSPLANT
     Dosage: UNK, UNK
     Dates: start: 20050311, end: 20050411
  2. DICLOFENAC SODIUM [Suspect]
     Dosage: 150 MG, QD
     Dates: start: 20050406, end: 20050412
  3. NEORAL [Concomitant]
     Indication: RENAL TRANSPLANT
     Dosage: 60 MG DAILY
     Dates: start: 20050224
  4. MEPREDNISONE [Concomitant]
     Dosage: 4MG DAILY
     Dates: start: 19990514

REACTIONS (11)
  - BRADYCARDIA [None]
  - DRUG TOXICITY [None]
  - GASTRIC HAEMORRHAGE [None]
  - HAEMATEMESIS [None]
  - HYPOTENSION [None]
  - HYPOVOLAEMIC SHOCK [None]
  - METABOLIC ACIDOSIS [None]
  - MUCOSAL EROSION [None]
  - RESPIRATORY FAILURE [None]
  - SELF-MEDICATION [None]
  - TENDONITIS [None]
